FAERS Safety Report 9843081 (Version 1)
Quarter: 2014Q1

REPORT INFORMATION
  Report Type: Spontaneous
  Country: FR (occurrence: FR)
  Receive Date: 20140124
  Receipt Date: 20140124
  Transmission Date: 20141002
  Serious: Yes (Other)
  Sender: FDA-Public Use
  Company Number: FR-WATSON-2013-24683

PATIENT
  Age: 70 Year
  Sex: Female

DRUGS (1)
  1. OMEPRAZOLE [Suspect]
     Indication: HIATUS HERNIA
     Dosage: UNK, UNKNOWN
     Route: 048
     Dates: start: 20120505, end: 20120808

REACTIONS (3)
  - Abdominal pain upper [Not Recovered/Not Resolved]
  - Hypertension [Unknown]
  - Vomiting [Not Recovered/Not Resolved]
